FAERS Safety Report 11867380 (Version 1)
Quarter: 2015Q4

REPORT INFORMATION
  Report Type: Spontaneous
  Country: GB (occurrence: GB)
  Receive Date: 20151224
  Receipt Date: 20151224
  Transmission Date: 20160305
  Serious: Yes (Hospitalization, Other)
  Sender: FDA-Public Use
  Company Number: GB-SA-2015SA214432

PATIENT
  Age: 72 Year
  Sex: Male

DRUGS (14)
  1. CLOPIDOGREL BISULFATE. [Suspect]
     Active Substance: CLOPIDOGREL BISULFATE
     Indication: PROPHYLAXIS
     Route: 048
     Dates: end: 20151207
  2. LACTULOSE. [Concomitant]
     Active Substance: LACTULOSE
  3. NAPROXEN. [Suspect]
     Active Substance: NAPROXEN
     Indication: GOUT
     Route: 048
     Dates: start: 20151203, end: 20151207
  4. ATORVASTATIN [Concomitant]
     Active Substance: ATORVASTATIN
  5. FUROSEMIDE. [Concomitant]
     Active Substance: FUROSEMIDE
  6. AMLODIPINE [Concomitant]
     Active Substance: AMLODIPINE BESYLATE
  7. DOXAZOSIN [Concomitant]
     Active Substance: DOXAZOSIN\DOXAZOSIN MESYLATE
  8. FERROUS FUMARATE [Concomitant]
     Active Substance: FERROUS FUMARATE
  9. CLOPIDOGREL [Concomitant]
     Active Substance: CLOPIDOGREL BISULFATE
  10. FENBID [Concomitant]
     Active Substance: IBUPROFEN
  11. FLUCLOXACILLIN [Concomitant]
     Active Substance: FLUCLOXACILLIN
  12. LANSOPRAZOLE. [Concomitant]
     Active Substance: LANSOPRAZOLE
  13. PREGABALIN. [Concomitant]
     Active Substance: PREGABALIN
  14. ZOMORPH [Concomitant]
     Active Substance: MORPHINE SULFATE

REACTIONS (2)
  - Gastritis [Unknown]
  - Upper gastrointestinal haemorrhage [Recovering/Resolving]

NARRATIVE: CASE EVENT DATE: 20151207
